FAERS Safety Report 16423038 (Version 2)
Quarter: 2019Q4

REPORT INFORMATION
  Report Type: Report from Study
  Country: US (occurrence: US)
  Receive Date: 20190612
  Receipt Date: 20191111
  Transmission Date: 20200122
  Serious: Yes (Hospitalization)
  Sender: FDA-Public Use
  Company Number: US-ACTELION-A-NJ2018-165844

PATIENT
  Age: 74 Year
  Sex: Female

DRUGS (5)
  1. OPSUMIT [Suspect]
     Active Substance: MACITENTAN
     Indication: PULMONARY ARTERIAL HYPERTENSION
     Dosage: 10 MG, QD
     Route: 048
     Dates: start: 201712
  2. VITAMIN B COMPLEX [Concomitant]
     Active Substance: CYANOCOBALAMIN\DEXPANTHENOL\NIACINAMIDE\PYRIDOXINE HYDROCHLORIDE\RIBOFLAVIN 5^-PHOSPHATE SODIUM\THIAMINE HYDROCHLORIDE\VITAMIN B COMPLEX
     Dosage: 1 UNKNOWN MG, QD
  3. CLARITIN [Concomitant]
     Active Substance: LORATADINE
     Dosage: 1 UNKNOWN MG, QD
  4. ADEMPAS [Concomitant]
     Active Substance: RIOCIGUAT
     Dosage: 1 UNKNOWN MG DAILY
     Dates: start: 2017
  5. IRON [Concomitant]
     Active Substance: IRON
     Dosage: 1 UNKNOWN MG, QD
     Dates: start: 2017

REACTIONS (6)
  - Therapeutic procedure [Recovered/Resolved]
  - Memory impairment [Not Recovered/Not Resolved]
  - Peripheral swelling [Not Recovered/Not Resolved]
  - Product dose omission [Unknown]
  - Nasopharyngitis [Unknown]
  - Oedema peripheral [Not Recovered/Not Resolved]

NARRATIVE: CASE EVENT DATE: 201712
